FAERS Safety Report 24715551 (Version 3)
Quarter: 2025Q1

REPORT INFORMATION
  Report Type: Report from Study
  Country: JP (occurrence: JP)
  Receive Date: 20241210
  Receipt Date: 20250317
  Transmission Date: 20250408
  Serious: Yes (Other)
  Sender: ROCHE
  Company Number: JP-ROCHE-10000146890

PATIENT

DRUGS (1)
  1. TOCILIZUMAB [Suspect]
     Active Substance: TOCILIZUMAB
     Indication: Giant cell arteritis
     Route: 065

REACTIONS (23)
  - Cellulitis [Unknown]
  - Pneumonia influenzal [Unknown]
  - Gastritis viral [Unknown]
  - Laryngitis [Unknown]
  - Enteritis infectious [Unknown]
  - Herpes zoster [Unknown]
  - Herpes virus infection [Unknown]
  - Herpes oesophagitis [Unknown]
  - Viral upper respiratory tract infection [Unknown]
  - Subcutaneous abscess [Unknown]
  - Neutropenia [Unknown]
  - Thrombocytopenia [Unknown]
  - Aortic dissection [Unknown]
  - Cardiac failure [Unknown]
  - Diabetes mellitus [Unknown]
  - Inappropriate antidiuretic hormone secretion [Unknown]
  - Adrenal insufficiency [Unknown]
  - Hepatic enzyme increased [Unknown]
  - Blood creatinine increased [Unknown]
  - Injection site reaction [Unknown]
  - Myalgia [Unknown]
  - Fatigue [Unknown]
  - Platelet count decreased [Unknown]
